FAERS Safety Report 5086702-5 (Version None)
Quarter: 2006Q3

REPORT INFORMATION
  Report Type: 
  Country: None (occurrence: None)
  Receive Date: 20060818
  Receipt Date: 20060803
  Transmission Date: 20061208
  Serious: Yes (Hospitalization, Other)
  Sender: FDA-Public Use
  Company Number: A-US2006-12805

PATIENT
  Age: 63 Year
  Sex: Female

DRUGS (36)
  1. TRACLEER [Suspect]
     Indication: PULMONARY HYPERTENSION
     Dosage: ORAL ; 125 MG BID ORAL ; 62.5 MG BID ORAL ; 125 MG QAM ORAL ; 62.5 QPM ORAL
     Route: 048
     Dates: end: 20060510
  2. TRACLEER [Suspect]
     Indication: PULMONARY HYPERTENSION
     Dosage: ORAL ; 125 MG BID ORAL ; 62.5 MG BID ORAL ; 125 MG QAM ORAL ; 62.5 QPM ORAL
     Route: 048
     Dates: start: 20060511, end: 20060528
  3. TRACLEER [Suspect]
     Indication: PULMONARY HYPERTENSION
     Dosage: ORAL ; 125 MG BID ORAL ; 62.5 MG BID ORAL ; 125 MG QAM ORAL ; 62.5 QPM ORAL
     Route: 048
     Dates: start: 20030701
  4. TRACLEER [Suspect]
     Indication: PULMONARY HYPERTENSION
     Dosage: ORAL ; 125 MG BID ORAL ; 62.5 MG BID ORAL ; 125 MG QAM ORAL ; 62.5 QPM ORAL
     Route: 048
     Dates: start: 20060529
  5. TRACLEER [Suspect]
     Indication: PULMONARY HYPERTENSION
     Dosage: ORAL ; 125 MG BID ORAL ; 62.5 MG BID ORAL ; 125 MG QAM ORAL ; 62.5 QPM ORAL
     Route: 048
     Dates: start: 20060529
  6. REMODULIN [Concomitant]
  7. LASIX [Concomitant]
  8. POTASSIUM CHLORIDE [Concomitant]
  9. OS-CAL (CALCIUM, ERGOCALCIFEROL) [Concomitant]
  10. SPIRONOLACTONE [Concomitant]
  11. PAXIL [Concomitant]
  12. RHINOCORT [Concomitant]
  13. ADVAIR DISKUS 100/50 [Concomitant]
  14. FERROUS SULFATE TAB [Concomitant]
  15. PROTONIX [Concomitant]
  16. PHENERGAN (PROMETHAZINE HYDROCHLORIDE) [Concomitant]
  17. VICODIN [Concomitant]
  18. TRAMADOL HCL [Concomitant]
  19. SINGULAIR [Concomitant]
  20. COUMADIN [Concomitant]
  21. LEVAQUIN [Concomitant]
  22. FLUCONAZOLE [Concomitant]
  23. PENTAMIDINE ISETHIONATE [Concomitant]
  24. AMOXICILLIN [Concomitant]
  25. CLARITHROMYCIN [Concomitant]
  26. NEXIUM [Concomitant]
  27. TRAZODONE HCL [Concomitant]
  28. HALDOL [Concomitant]
  29. VANCOMYCIN [Concomitant]
  30. ZYVOX [Concomitant]
  31. LEVAQUIN [Concomitant]
  32. VASOPRESSIN [Concomitant]
  33. DOPAMINE [Concomitant]
  34. ALBUMIN (ALBUMIN NORMAL HUMAN SERUM) [Concomitant]
  35. EPOGEN [Concomitant]
  36. IRON [Concomitant]

REACTIONS (46)
  - ABDOMINAL ABSCESS [None]
  - ACTIVITIES OF DAILY LIVING IMPAIRED [None]
  - ALANINE AMINOTRANSFERASE INCREASED [None]
  - ANAEMIA [None]
  - ASCITES [None]
  - ASPARTATE AMINOTRANSFERASE INCREASED [None]
  - ATRIAL FIBRILLATION [None]
  - BACTERIAL INFECTION [None]
  - BILIARY CIRRHOSIS PRIMARY [None]
  - BLISTER [None]
  - BLOOD ALBUMIN DECREASED [None]
  - BLOOD ALKALINE PHOSPHATASE INCREASED [None]
  - BLOOD BILIRUBIN INCREASED [None]
  - CANDIDIASIS [None]
  - CARDIAC FAILURE CONGESTIVE [None]
  - CHILLS [None]
  - COELIAC DISEASE [None]
  - DECREASED APPETITE [None]
  - DIARRHOEA [None]
  - DUODENAL ULCER PERFORATION [None]
  - EPISTAXIS [None]
  - FATIGUE [None]
  - GALLBLADDER PERFORATION [None]
  - HAEMATOCHEZIA [None]
  - HELICOBACTER INFECTION [None]
  - HEPATIC FIBROSIS [None]
  - HYPONATRAEMIA [None]
  - HYPOTENSION [None]
  - KLEBSIELLA INFECTION [None]
  - MELAENA [None]
  - METABOLIC ACIDOSIS [None]
  - NAUSEA [None]
  - OEDEMA [None]
  - PALPITATIONS [None]
  - PERITONEAL FLUID ANALYSIS ABNORMAL [None]
  - PORTAL HYPERTENSION [None]
  - RASH [None]
  - RENAL FAILURE [None]
  - SEPSIS [None]
  - STAPHYLOCOCCAL INFECTION [None]
  - STENOTROPHOMONAS INFECTION [None]
  - URINARY TRACT INFECTION [None]
  - URINE OUTPUT DECREASED [None]
  - VOMITING [None]
  - WEIGHT DECREASED [None]
  - WHITE BLOOD CELL COUNT INCREASED [None]
